FAERS Safety Report 5666731-0 (Version None)
Quarter: 2008Q1

REPORT INFORMATION
  Report Type: 
  Country: None (occurrence: None)
  Receive Date: 20080315
  Receipt Date: 20080122
  Transmission Date: 20080703
  Serious: No
  Sender: FDA-Public Use
  Company Number: US-ABBOTT-07P-163-0431433-00

PATIENT
  Sex: Female
  Weight: 86.26 kg

DRUGS (1)
  1. HUMIRA [Suspect]
     Indication: RHEUMATOID ARTHRITIS
     Route: 058
     Dates: start: 20060901

REACTIONS (3)
  - INJECTION SITE IRRITATION [None]
  - INJECTION SITE PAIN [None]
  - UNDERDOSE [None]
